FAERS Safety Report 6770834-7 (Version None)
Quarter: 2010Q2

REPORT INFORMATION
  Report Type: 
  Country: None (occurrence: None)
  Receive Date: 20100614
  Receipt Date: 20100614
  Transmission Date: 20101027
  Serious: No
  Sender: FDA-Public Use
  Company Number: None

PATIENT
  Sex: Female
  Weight: 125.5 kg

DRUGS (16)
  1. ASMANEX TWISTHALER [Suspect]
     Indication: ASTHMA
     Dosage: 1 INHALATION TWICE DAILY ORALLY
     Route: 048
     Dates: start: 20100318, end: 20100319
  2. DIOVAN [Concomitant]
  3. ATENOLOL [Concomitant]
  4. SINGULAIR [Concomitant]
  5. ADVIAR [Concomitant]
  6. HCTZ [Concomitant]
  7. XYZAL [Concomitant]
  8. PROVENTIL-HFA [Concomitant]
  9. NASONEX [Concomitant]
  10. VITAMIN D [Concomitant]
  11. FLAX GROUND OIL [Concomitant]
  12. L-LYSINE [Concomitant]
  13. CHROMIACIN [Concomitant]
  14. VITAMIN B6 [Concomitant]
  15. VITAMIN B-12 [Concomitant]
  16. OMEGA PLUS [Concomitant]

REACTIONS (1)
  - VISION BLURRED [None]
